FAERS Safety Report 5804566-6 (Version None)
Quarter: 2008Q3

REPORT INFORMATION
  Report Type: 
  Country: None (occurrence: None)
  Receive Date: 20080707
  Receipt Date: 20080707
  Transmission Date: 20090109
  Serious: Yes (Other)
  Sender: FDA-Public Use
  Company Number: None

PATIENT
  Sex: Male
  Weight: 77.1115 kg

DRUGS (1)
  1. FLOVENT HFA [Suspect]
     Indication: ASTHMA
     Dosage: ONE HALATION TWICE PER DAY INHAL
     Route: 055
     Dates: start: 20071205, end: 20080115

REACTIONS (2)
  - CHEST PAIN [None]
  - DRUG INEFFECTIVE [None]
